FAERS Safety Report 10098517 (Version 1)
Quarter: 2014Q2

REPORT INFORMATION
  Report Type: Spontaneous
  Country: US (occurrence: None)
  Receive Date: 20140422
  Receipt Date: 20140422
  Transmission Date: 20141212
  Serious: Yes (Other)
  Sender: FDA-Public Use
  Company Number: None

PATIENT
  Age: 60 Year
  Sex: Female

DRUGS (6)
  1. SPINAL MARCAINE 0.75% + 8.25% DEXTROSE HOSPIRA [Suspect]
     Indication: SPINAL ANAESTHESIA
     Route: 037
     Dates: start: 20140411, end: 20140411
  2. MIDAZOLAM [Concomitant]
  3. LIDOCAINE [Concomitant]
  4. PROPOFOL [Concomitant]
  5. ANCEF [Concomitant]
  6. OFIRMEV [Concomitant]

REACTIONS (2)
  - Anaesthetic complication [None]
  - Pain [None]
